FAERS Safety Report 4487999-2 (Version None)
Quarter: 2004Q4

REPORT INFORMATION
  Report Type: 
  Country: None (occurrence: None)
  Receive Date: 20041025
  Receipt Date: 20041016
  Transmission Date: 20050328
  Serious: Yes (Other)
  Sender: FDA-Public Use
  Company Number: 2004-10-0878

PATIENT
  Age: 7 Year
  Sex: Male

DRUGS (1)
  1. BETAMETHASONE [Suspect]
     Indication: ASTHMA
     Dosage: 150 DROPS QD ORAL
     Route: 048

REACTIONS (2)
  - ANGIONEUROTIC OEDEMA [None]
  - URTICARIA GENERALISED [None]
